FAERS Safety Report 14141355 (Version 3)
Quarter: 2017Q4

REPORT INFORMATION
  Report Type: Spontaneous
  Country: JP (occurrence: JP)
  Receive Date: 20171030
  Receipt Date: 20171228
  Transmission Date: 20180321
  Serious: Yes (Hospitalization, Other)
  Sender: FDA-Public Use
  Company Number: JP-PFIZER INC-2017465044

PATIENT
  Age: 84 Year
  Sex: Male
  Weight: 59 kg

DRUGS (6)
  1. TAMSULOSIN [Concomitant]
     Active Substance: TAMSULOSIN
     Indication: BENIGN PROSTATIC HYPERPLASIA
     Dosage: 0.2 MG, 1X/DAY
     Route: 048
  2. RABEPRAZOLE [Concomitant]
     Active Substance: RABEPRAZOLE
     Indication: GASTROOESOPHAGEAL REFLUX DISEASE
     Dosage: 10 MG, 1X/DAY
     Route: 048
  3. MEIACT [Suspect]
     Active Substance: CEFDITOREN PIVOXIL
     Indication: SEPSIS
     Dosage: 100 MG, 3X/DAY
     Dates: start: 20171004, end: 20171006
  4. CEFTRIAXONE SODIUM PFIZER [Suspect]
     Active Substance: CEFTRIAXONE SODIUM
     Indication: SEPSIS
     Dosage: 2 G, DAILY
     Route: 042
     Dates: start: 20171006, end: 20171010
  5. INSULIN [Concomitant]
     Active Substance: INSULIN NOS
     Dosage: UNK
  6. AMVALO [Concomitant]
     Indication: HYPERTENSION
     Dosage: 1 TABLET, 1X/DAY
     Route: 048

REACTIONS (2)
  - Therapy non-responder [Unknown]
  - Interstitial lung disease [Recovered/Resolved]

NARRATIVE: CASE EVENT DATE: 20171010
